FAERS Safety Report 16403686 (Version 1)
Quarter: 2019Q2

REPORT INFORMATION
  Report Type: Report from Study
  Country: IT (occurrence: IT)
  Receive Date: 20190607
  Receipt Date: 20190607
  Transmission Date: 20190711
  Serious: Yes (Hospitalization, Other)
  Sender: FDA-Public Use
  Company Number: IT-BRISTOL-MYERS SQUIBB COMPANY-BMS-2019-055688

PATIENT
  Age: 64 Year
  Sex: Female

DRUGS (8)
  1. LORAZEPAM. [Concomitant]
     Active Substance: LORAZEPAM
     Indication: INSOMNIA
     Dosage: 90 MILLIGRAM
     Route: 065
  2. SELEPARINA [Concomitant]
     Active Substance: NADROPARIN CALCIUM
     Indication: THROMBOSIS PROPHYLAXIS
     Dosage: 1 (UNITS NOT SPECIFIED)
     Route: 065
     Dates: start: 20171005
  3. ENTECAVIR. [Suspect]
     Active Substance: ENTECAVIR
     Indication: HEPATITIS B VIRUS TEST POSITIVE
     Dosage: 0.5 MILLIGRAM
     Route: 065
     Dates: start: 201303
  4. CC-122 [Suspect]
     Active Substance: AVADOMIDE
     Indication: B-CELL LYMPHOMA
     Dosage: CYCLE 1 MONDAY-FRIDAY
     Route: 048
     Dates: start: 20171005, end: 20171102
  5. CC-122 [Suspect]
     Active Substance: AVADOMIDE
     Indication: PRODUCT USED FOR UNKNOWN INDICATION
     Dosage: CYCLE 1 MONDAY-FRIDAY
     Route: 048
     Dates: start: 20190221, end: 20190320
  6. FILGRASTIM [Concomitant]
     Active Substance: FILGRASTIM
     Indication: PROPHYLAXIS
     Dosage: 2 UNITS NOTSPECIFIED
     Route: 065
     Dates: start: 201804
  7. RITUXIMAB. [Suspect]
     Active Substance: RITUXIMAB
     Indication: B-CELL LYMPHOMA
     Dosage: CYCLE 1
     Route: 042
     Dates: start: 20171012, end: 20171012
  8. OMEPRAZEN [OMEPRAZOLE] [Suspect]
     Active Substance: OMEPRAZOLE
     Indication: PRODUCT USED FOR UNKNOWN INDICATION
     Route: 065
     Dates: start: 201501

REACTIONS (1)
  - Herpes ophthalmic [Not Recovered/Not Resolved]

NARRATIVE: CASE EVENT DATE: 20190318
